FAERS Safety Report 23786372 (Version 1)
Quarter: 2024Q2

REPORT INFORMATION
  Report Type: Spontaneous
  Country: FR (occurrence: FR)
  Receive Date: 20240426
  Receipt Date: 20240426
  Transmission Date: 20240715
  Serious: Yes (Hospitalization)
  Sender: FDA-Public Use
  Company Number: None

PATIENT
  Age: 84 Year
  Sex: Male
  Weight: 60 kg

DRUGS (7)
  1. ROSUVASTATIN [Suspect]
     Active Substance: ROSUVASTATIN
     Indication: Myocardial ischaemia
     Route: 048
  2. PAROXETINE HYDROCHLORIDE [Concomitant]
     Active Substance: PAROXETINE HYDROCHLORIDE\PAROXETINE HYDROCHLORIDE ANHYDROUS
     Indication: Product used for unknown indication
     Dosage: DEROXAT 20 MG, FILM-COATED TABLET
     Route: 065
  3. DOCETAXEL [Suspect]
     Active Substance: DOCETAXEL\DOCETAXEL ANHYDROUS
     Indication: Prostate cancer metastatic
     Route: 042
     Dates: start: 20240222, end: 20240222
  4. DOCETAXEL [Suspect]
     Active Substance: DOCETAXEL\DOCETAXEL ANHYDROUS
     Indication: Prostate cancer metastatic
     Route: 042
     Dates: start: 20240111, end: 20240111
  5. DECAPEPTYL [Concomitant]
     Indication: Product used for unknown indication
     Dosage: DECAPEPTYL L.P. 11.25 MG, POWDER AND SOLVENT FOR SUSPENSION FOR INJECTION (IM) PROLONGED RELEASE ...
     Route: 065
  6. CIALIS [Concomitant]
     Active Substance: TADALAFIL
     Indication: Product used for unknown indication
     Dosage: CIALIS 5 MG, FILM-COATED TABLET
     Route: 065
  7. ABIRATERONE ACETATE [Concomitant]
     Active Substance: ABIRATERONE ACETATE
     Indication: Product used for unknown indication
     Route: 065

REACTIONS (1)
  - Interstitial lung disease [Recovering/Resolving]

NARRATIVE: CASE EVENT DATE: 20240201
